FAERS Safety Report 9094194 (Version 1)
Quarter: 2013Q1

REPORT INFORMATION
  Report Type: Spontaneous
  Country: US (occurrence: None)
  Receive Date: 20130122
  Receipt Date: 20130122
  Transmission Date: 20140127
  Serious: Yes (Death, Other)
  Sender: FDA-Public Use
  Company Number: 2013MA000399

PATIENT
  Age: 55 Year
  Sex: Male

DRUGS (2)
  1. KADIAN [Suspect]
     Indication: PRODUCT USED FOR UNKNOWN INDICATION
  2. METHAMPHETAMINE [Suspect]

REACTIONS (1)
  - Drug abuse [None]
